FAERS Safety Report 5479487-1 (Version None)
Quarter: 2007Q3

REPORT INFORMATION
  Report Type: 
  Country: None (occurrence: None)
  Receive Date: 20070913
  Receipt Date: 20070323
  Transmission Date: 20080115
  Serious: Yes (Other)
  Sender: FDA-Public Use
  Company Number: 35498

PATIENT
  Age: 46 Year
  Sex: Female
  Weight: 76.6579 kg

DRUGS (6)
  1. PACLITAXEL [Suspect]
     Indication: BREAST CANCER
     Dosage: 298MG/IV
     Route: 042
     Dates: start: 20070307
  2. DECADRON [Concomitant]
  3. BENADRYL [Concomitant]
  4. ZANTAC [Concomitant]
  5. ANZEMET [Concomitant]
  6. NSS [Concomitant]

REACTIONS (1)
  - PAIN [None]
